FAERS Safety Report 21360276 (Version 5)
Quarter: 2023Q2

REPORT INFORMATION
  Report Type: Spontaneous
  Country: US (occurrence: US)
  Receive Date: 20220921
  Receipt Date: 20230605
  Transmission Date: 20230721
  Serious: No
  Sender: FDA-Public Use
  Company Number: US-PHARMAESSENTIA CORPORATION-US-2022-PEC-000683

PATIENT

DRUGS (5)
  1. BESREMI [Suspect]
     Active Substance: ROPEGINTERFERON ALFA-2B-NJFT
     Indication: Polycythaemia vera
     Dosage: 100 MCG, EVERY 14 DAYS
     Route: 058
     Dates: start: 20220521
  2. BESREMI [Suspect]
     Active Substance: ROPEGINTERFERON ALFA-2B-NJFT
     Dosage: 150 MCG, EVERY 2 WEEKS
     Route: 058
  3. BESREMI [Suspect]
     Active Substance: ROPEGINTERFERON ALFA-2B-NJFT
     Dosage: UNK
     Route: 058
     Dates: start: 20221026
  4. BESREMI [Suspect]
     Active Substance: ROPEGINTERFERON ALFA-2B-NJFT
     Dosage: UNK
     Route: 058
  5. BESREMI [Suspect]
     Active Substance: ROPEGINTERFERON ALFA-2B-NJFT
     Dosage: 100 MCG
     Route: 058

REACTIONS (12)
  - Lower respiratory tract congestion [Unknown]
  - Haematocrit increased [Unknown]
  - Inappropriate schedule of product administration [Unknown]
  - Renal disorder [Unknown]
  - Vomiting [Not Recovered/Not Resolved]
  - Agitation [Unknown]
  - Hepatic enzyme increased [Not Recovered/Not Resolved]
  - Nausea [Not Recovered/Not Resolved]
  - Arthralgia [Recovered/Resolved]
  - Cough [Unknown]
  - Mood altered [Not Recovered/Not Resolved]
  - White blood cell count decreased [Unknown]
